FAERS Safety Report 9918269 (Version 2)
Quarter: 2014Q3

REPORT INFORMATION
  Report Type: Spontaneous
  Country: JP (occurrence: JP)
  Receive Date: 20140224
  Receipt Date: 20140813
  Transmission Date: 20150326
  Serious: Yes (Hospitalization, Other)
  Sender: FDA-Public Use
  Company Number: JP-ROCHE-1353877

PATIENT
  Age: 71 Year
  Sex: Male
  Weight: 68 kg

DRUGS (7)
  1. DEXART [Concomitant]
     Active Substance: DEXAMETHASONE SODIUM PHOSPHATE
     Indication: RECTAL CANCER RECURRENT
     Route: 042
     Dates: start: 20130425, end: 20140131
  2. GRANISETRON [Concomitant]
     Active Substance: GRANISETRON
     Indication: RECTAL CANCER RECURRENT
     Route: 042
     Dates: start: 20130425, end: 20140131
  3. AVASTIN [Suspect]
     Active Substance: BEVACIZUMAB
     Indication: RECTAL CANCER RECURRENT
     Route: 041
     Dates: start: 20130425, end: 20140131
  4. 5-FU IV [Suspect]
     Active Substance: FLUOROURACIL
     Indication: RECTAL CANCER RECURRENT
     Route: 040
     Dates: start: 20130425, end: 20140131
  5. 5-FU IV [Suspect]
     Active Substance: FLUOROURACIL
     Indication: RECTAL CANCER RECURRENT
     Route: 041
     Dates: start: 20130425, end: 20140131
  6. ELPLAT [Concomitant]
     Active Substance: OXALIPLATIN
     Indication: RECTAL CANCER RECURRENT
     Route: 041
     Dates: start: 20130425, end: 20131220
  7. LEVOFOLINATE [Concomitant]
     Active Substance: LEVOLEUCOVORIN CALCIUM
     Indication: RECTAL CANCER RECURRENT
     Route: 041
     Dates: start: 20130425, end: 20131220

REACTIONS (2)
  - Hypoaesthesia [Unknown]
  - Interstitial lung disease [Recovered/Resolved]

NARRATIVE: CASE EVENT DATE: 20140214
